FAERS Safety Report 10602119 (Version 1)
Quarter: 2014Q4

REPORT INFORMATION
  Report Type: Spontaneous
  Country: FR (occurrence: FR)
  Receive Date: 20141124
  Receipt Date: 20141124
  Transmission Date: 20150529
  Serious: Yes (Hospitalization, Other)
  Sender: FDA-Public Use
  Company Number: FR-BRISTOL-MYERS SQUIBB COMPANY-21605134

PATIENT
  Age: 86 Year
  Sex: Male

DRUGS (6)
  1. FUNGIZONE [Concomitant]
     Active Substance: AMPHOTERICIN B
  2. ALPRAZOLAM. [Concomitant]
     Active Substance: ALPRAZOLAM
  3. ORAMORPH SR SUSTAINED RELEASE [Concomitant]
     Active Substance: MORPHINE SULFATE
  4. LAROSCORBINE [Concomitant]
     Active Substance: ASCORBIC ACID
  5. COUMADINE [Suspect]
     Active Substance: WARFARIN SODIUM
     Indication: PULMONARY EMBOLISM
     Dosage: DRUG INTERRUPTED ON 19-OCT-2014
     Route: 048
     Dates: start: 20141016
  6. DAFALGAN [Concomitant]
     Active Substance: ACETAMINOPHEN

REACTIONS (4)
  - Haematoma [Unknown]
  - International normalised ratio increased [Recovered/Resolved]
  - Anaemia [Not Recovered/Not Resolved]
  - VIIth nerve paralysis [Unknown]

NARRATIVE: CASE EVENT DATE: 20141019
